FAERS Safety Report 8820865 (Version 1)
Quarter: 2012Q4

REPORT INFORMATION
  Report Type: 
  Country: BR (occurrence: BR)
  Receive Date: 20121002
  Receipt Date: 20121002
  Transmission Date: 20130627
  Serious: Yes (Other)
  Sender: FDA-Public Use
  Company Number: BR-PFIZER INC-2012241560

PATIENT
  Age: 79 Year
  Sex: Male

DRUGS (3)
  1. LYRICA [Suspect]
     Indication: NEURALGIA
     Dosage: 75 mg, 3x/day
     Route: 048
     Dates: start: 2010, end: 2011
  2. CYMBALTA [Concomitant]
     Indication: PAIN
     Dosage: one tablet daily
     Dates: start: 2010
  3. ETANERCEPT [Concomitant]
     Dosage: 75 mg, 3 capsules during one year and a half

REACTIONS (1)
  - Spinal disorder [Unknown]
